FAERS Safety Report 16515583 (Version 1)
Quarter: 2019Q3

REPORT INFORMATION
  Report Type: Spontaneous
  Country: US (occurrence: US)
  Receive Date: 20190702
  Receipt Date: 20190702
  Transmission Date: 20191004
  Serious: Yes (Other)
  Sender: FDA-Public Use
  Company Number: None

PATIENT
  Age: 37 Year
  Sex: Female
  Weight: 74.25 kg

DRUGS (6)
  1. AIMOVIG [Suspect]
     Active Substance: ERENUMAB-AOOE
     Indication: MIGRAINE
     Dosage: ?          OTHER FREQUENCY:MONTHLY;OTHER ROUTE:INJECTION?
     Dates: start: 20180615, end: 20181121
  2. NARDIL [Concomitant]
     Active Substance: PHENELZINE SULFATE
  3. RELAFEN [Concomitant]
     Active Substance: NABUMETONE
  4. DEPAKOTE [Concomitant]
     Active Substance: DIVALPROEX SODIUM
  5. ROBAXIN [Concomitant]
     Active Substance: METHOCARBAMOL
  6. MAGNESIUM [Concomitant]
     Active Substance: MAGNESIUM

REACTIONS (1)
  - Musculoskeletal stiffness [None]

NARRATIVE: CASE EVENT DATE: 20180924
